FAERS Safety Report 17643996 (Version 1)
Quarter: 2020Q2

REPORT INFORMATION
  Report Type: Spontaneous
  Country: US (occurrence: US)
  Receive Date: 20200407
  Receipt Date: 20200407
  Transmission Date: 20200713
  Serious: No
  Sender: FDA-Public Use
  Company Number: None

PATIENT
  Age: 58 Year
  Sex: Male

DRUGS (1)
  1. GILENYA [Suspect]
     Active Substance: FINGOLIMOD HYDROCHLORIDE
     Indication: MULTIPLE SCLEROSIS
     Route: 048
     Dates: start: 20161107

REACTIONS (7)
  - Ulcer [None]
  - Pain [None]
  - Swelling [None]
  - Feeling cold [None]
  - Anaemia [None]
  - Birth mark [None]
  - Helicobacter infection [None]

NARRATIVE: CASE EVENT DATE: 20191225
